FAERS Safety Report 4349517-9 (Version None)
Quarter: 2004Q1

REPORT INFORMATION
  Report Type: 
  Country: None (occurrence: None)
  Receive Date: 20040325
  Receipt Date: 20031205
  Transmission Date: 20041129
  Serious: No
  Sender: FDA-Public Use
  Company Number: USA031051137

PATIENT
  Age: 74 Year
  Sex: Female

DRUGS (4)
  1. FORTEO [Suspect]
     Indication: FRACTURE
     Dosage: 20 UG/DAY
     Dates: start: 20030901
  2. FORTEO [Suspect]
     Indication: OSTEOPOROSIS
     Dosage: 20 UG/DAY
     Dates: start: 20030901
  3. FOSAMAX [Concomitant]
  4. CALCIUM [Concomitant]

REACTIONS (5)
  - DIZZINESS [None]
  - DYSPEPSIA [None]
  - MALAISE [None]
  - PAIN IN EXTREMITY [None]
  - VOMITING [None]
